FAERS Safety Report 7441434-0 (Version None)
Quarter: 2011Q2

REPORT INFORMATION
  Report Type: 
  Country: None (occurrence: None)
  Receive Date: 20110428
  Receipt Date: 20110418
  Transmission Date: 20111010
  Serious: Yes (Other)
  Sender: FDA-Public Use
  Company Number: US-JNJFOC-20110404155

PATIENT
  Sex: Female

DRUGS (1)
  1. DURAGESIC-50 [Suspect]
     Indication: CANCER PAIN
     Route: 062

REACTIONS (3)
  - NEOPLASM MALIGNANT [None]
  - PAIN [None]
  - HEPATITIS C [None]
